FAERS Safety Report 22525492 (Version 1)
Quarter: 2023Q2

REPORT INFORMATION
  Report Type: Spontaneous
  Country: US (occurrence: US)
  Receive Date: 20230606
  Receipt Date: 20230606
  Transmission Date: 20230721
  Serious: No
  Sender: FDA-Public Use
  Company Number: US-C B Fleet Co Inc-202303-US-000962

PATIENT
  Sex: Female

DRUGS (2)
  1. NIX COMPLETE MAXIMUM STRENGTH LICE ELIMINATION [Suspect]
     Active Substance: PERMETHRIN
     Indication: Lice infestation
     Dosage: QUITE SOME TIME
     Route: 061
  2. NIX [Suspect]
     Active Substance: PERMETHRIN
     Indication: Lice infestation
     Dosage: QUITE SOME TIME

REACTIONS (2)
  - Skin burning sensation [Recovering/Resolving]
  - Pruritus [Recovering/Resolving]
